FAERS Safety Report 17983939 (Version 3)
Quarter: 2020Q4

REPORT INFORMATION
  Report Type: Spontaneous
  Country: US (occurrence: US)
  Receive Date: 20200706
  Receipt Date: 20201127
  Transmission Date: 20210113
  Serious: No
  Sender: FDA-Public Use
  Company Number: US-EMD SERONO-9172677

PATIENT
  Age: 60 Year
  Sex: Male

DRUGS (3)
  1. SEROSTIM [Suspect]
     Active Substance: SOMATROPIN
     Indication: WEIGHT INCREASED
     Dates: start: 20200609, end: 2020
  2. SEROSTIM [Suspect]
     Active Substance: SOMATROPIN
     Dosage: DOSE REDUCED
     Dates: start: 2020
  3. SEROSTIM [Suspect]
     Active Substance: SOMATROPIN
     Dosage: PATIENT WENT BACK TO INITIAL DOSE. 1101917344, 2621981627, 2625357843 AND 1105471505 (LOT NUMBERS)
     Dates: start: 2020

REACTIONS (4)
  - Musculoskeletal stiffness [Not Recovered/Not Resolved]
  - Muscle spasms [Unknown]
  - Pain [Not Recovered/Not Resolved]
  - Arthralgia [Unknown]

NARRATIVE: CASE EVENT DATE: 2020
